FAERS Safety Report 15650065 (Version 3)
Quarter: 2019Q1

REPORT INFORMATION
  Report Type: Report from Study
  Country: JP (occurrence: JP)
  Receive Date: 20181123
  Receipt Date: 20190225
  Transmission Date: 20190417
  Serious: Yes (Life-Threatening, Hospitalization, Other)
  Sender: FDA-Public Use
  Company Number: JP-ROCHE-2219396

PATIENT
  Age: 62 Year
  Sex: Male

DRUGS (16)
  1. MIYA-BM [Concomitant]
     Active Substance: CLOSTRIDIUM BUTYRICUM SPORES STRAIN M-55
     Route: 048
     Dates: start: 20180817
  2. ISOTONIC SODIUM CHLORIDE SOLUTION KIT H [Concomitant]
     Dosage: DOSAGE IS UNCERTAIN.
     Route: 041
  3. ANTEBATE [Concomitant]
     Active Substance: BETAMETHASONE DIPROPIONATE
     Indication: SKIN DISORDER
     Dosage: BOTH FINGERS, ONCE
     Route: 003
  4. PREDONINE [Concomitant]
     Active Substance: PREDNISOLONE
     Dosage: DOSAGE IS UNCERTAIN.
     Route: 041
  5. ISOTONIC SODIUM CHLORIDE SOLUTION KIT H [Concomitant]
     Dosage: DOSAGE IS UNCERTAIN.
     Route: 041
  6. FEXOFENADINE HYDROCHLORIDE. [Concomitant]
     Active Substance: FEXOFENADINE HYDROCHLORIDE
     Route: 048
     Dates: start: 20180817
  7. PREDONINE [Concomitant]
     Active Substance: PREDNISOLONE
     Dosage: DOSAGE IS UNCERTAIN.
     Route: 041
  8. ATEZOLIZUMAB. [Suspect]
     Active Substance: ATEZOLIZUMAB
     Indication: SQUAMOUS CELL CARCINOMA OF LUNG
     Dosage: DOSAGE IS UNCERTAIN.
     Route: 041
  9. DERMOVATE [Concomitant]
     Active Substance: CLOBETASOL
     Indication: SKIN DISORDER
     Dosage: BOTH FINGERS, ONCE
     Route: 003
  10. RABEPRAZOLE SODIUM. [Concomitant]
     Active Substance: RABEPRAZOLE SODIUM
     Route: 048
     Dates: start: 20180829
  11. ISOTONIC SODIUM CHLORIDE SOLUTION KIT H [Concomitant]
     Dosage: DOSAGE IS UNCERTAIN.
     Route: 041
  12. TSUMURA DAIKENCHUTO [Concomitant]
     Active Substance: HERBALS
     Route: 048
     Dates: start: 20180817
  13. CALONAL [Concomitant]
     Active Substance: ACETAMINOPHEN
     Route: 048
     Dates: start: 20180817
  14. ISOTONIC SODIUM CHLORIDE SOLUTION KIT H [Concomitant]
     Dosage: DOSAGE IS UNCERTAIN.
     Route: 041
  15. ISOTONIC SODIUM CHLORIDE SOLUTION KIT H [Concomitant]
     Dosage: DOSAGE IS UNCERTAIN.
     Route: 041
  16. ISOTONIC SODIUM CHLORIDE SOLUTION KIT H [Concomitant]
     Dosage: DOSAGE IS UNCERTAIN.
     Route: 041

REACTIONS (6)
  - Liver function test increased [Unknown]
  - Cerebral infarction [Unknown]
  - Haemophagocytic lymphohistiocytosis [Recovering/Resolving]
  - Platelet count decreased [Unknown]
  - Trousseau^s syndrome [Unknown]
  - Tubulointerstitial nephritis [Recovering/Resolving]

NARRATIVE: CASE EVENT DATE: 2018
